FAERS Safety Report 11559441 (Version 1)
Quarter: 2015Q3

REPORT INFORMATION
  Report Type: Spontaneous
  Country: US (occurrence: None)
  Receive Date: 20150925
  Receipt Date: 20150925
  Transmission Date: 20151125
  Serious: Yes (Hospitalization)
  Sender: FDA-Public Use
  Company Number: None

PATIENT
  Age: 78 Year
  Sex: Female
  Weight: 49.9 kg

DRUGS (15)
  1. OMEGA 3 [Concomitant]
     Active Substance: OMEGA-3 FATTY ACIDS
  2. AMLODIPINE [Concomitant]
     Active Substance: AMLODIPINE BESYLATE
  3. FLAGYL [Concomitant]
     Active Substance: METRONIDAZOLE\METRONIDAZOLE HYDROCHLORIDE
  4. AMOX-CLAV-875 MG [Concomitant]
  5. NASACORT SPRAY [Concomitant]
  6. PROTONIX [Concomitant]
     Active Substance: PANTOPRAZOLE SODIUM
  7. VIT D - RED YEAST RICE [Concomitant]
  8. CALCIUM [Concomitant]
     Active Substance: CALCIUM
  9. PROLIA [Suspect]
     Active Substance: DENOSUMAB
     Indication: OSTEOPOROSIS
     Dates: start: 20150813
  10. LEVOTHYROXINE. [Concomitant]
     Active Substance: LEVOTHYROXINE
  11. MAGNESIUM [Concomitant]
     Active Substance: MAGNESIUM
  12. XALATAN [Concomitant]
     Active Substance: LATANOPROST
  13. DOXYCYLINE [Concomitant]
     Active Substance: DOXYCYCLINE
  14. VIT K2 [Concomitant]
  15. QUINAL CO-Q10 [Concomitant]

REACTIONS (9)
  - Back pain [None]
  - Gastrointestinal infection [None]
  - Pruritus [None]
  - Pain in extremity [None]
  - Abdominal pain upper [None]
  - Drug ineffective [None]
  - Abdominal pain lower [None]
  - Skin disorder [None]
  - Arthralgia [None]

NARRATIVE: CASE EVENT DATE: 20150823
